FAERS Safety Report 7378806-9 (Version None)
Quarter: 2011Q1

REPORT INFORMATION
  Report Type: 
  Country: None (occurrence: None)
  Receive Date: 20110328
  Receipt Date: 20110314
  Transmission Date: 20110831
  Serious: Yes (Other)
  Sender: FDA-Public Use
  Company Number: PHHY2011US13337

PATIENT
  Sex: Female

DRUGS (4)
  1. CALCIUM [Concomitant]
  2. RECLAST [Suspect]
     Dosage: 5 MG/YEAR
     Route: 042
     Dates: start: 20100401
  3. VITAMIN D [Concomitant]
  4. OXYCODONE HCL [Concomitant]

REACTIONS (2)
  - FOOT FRACTURE [None]
  - DRUG INEFFECTIVE [None]
